FAERS Safety Report 9541914 (Version 1)
Quarter: 2013Q3

REPORT INFORMATION
  Report Type: Spontaneous
  Country: US (occurrence: None)
  Receive Date: 20130919
  Receipt Date: 20130919
  Transmission Date: 20140515
  Serious: Yes (Life-Threatening, Hospitalization, Disabling, Other)
  Sender: FDA-Public Use
  Company Number: None

PATIENT
  Age: 38 Year
  Sex: Male
  Weight: 124.29 kg

DRUGS (2)
  1. CALCIUM [Suspect]
     Indication: PERITONEAL DIALYSIS
     Dosage: GIVEN INTO/UNDER THE SKIN
     Dates: start: 20130301, end: 20130830
  2. CALCIUM [Suspect]
     Indication: RENAL FAILURE
     Dosage: GIVEN INTO/UNDER THE SKIN
     Dates: start: 20130301, end: 20130830

REACTIONS (8)
  - Cardiac failure [None]
  - Thrombosis [None]
  - Lung disorder [None]
  - Peritonitis [None]
  - Hypertension [None]
  - Hernia [None]
  - Oedema [None]
  - Unevaluable event [None]
